FAERS Safety Report 17138254 (Version 1)
Quarter: 2019Q4

REPORT INFORMATION
  Report Type: Spontaneous
  Country: GB (occurrence: GB)
  Receive Date: 20191211
  Receipt Date: 20191211
  Transmission Date: 20200122
  Serious: Yes (Hospitalization, Other)
  Sender: FDA-Public Use
  Company Number: GB-AUROBINDO-AUR-APL-2019-104410

PATIENT
  Age: 78 Year
  Sex: Male
  Weight: 87 kg

DRUGS (1)
  1. AMIODARONE [Suspect]
     Active Substance: AMIODARONE
     Indication: ATRIAL FIBRILLATION
     Dosage: 200 MILLIGRAM, DAILY
     Route: 048
     Dates: start: 20190412, end: 20190717

REACTIONS (7)
  - Dyspnoea [Recovered/Resolved]
  - Pulmonary toxicity [Recovered/Resolved]
  - Pneumonitis [Recovered/Resolved]
  - Interstitial lung disease [Recovered/Resolved]
  - Pulmonary mass [Recovered/Resolved]
  - Dyspnoea paroxysmal nocturnal [Recovered/Resolved]
  - Orthopnoea [Recovered/Resolved]
